FAERS Safety Report 8987740 (Version 1)
Quarter: 2012Q4

REPORT INFORMATION
  Report Type: 
  Country: NL (occurrence: NL)
  Receive Date: 20121227
  Receipt Date: 20121227
  Transmission Date: 20130627
  Serious: Yes (Death, Other)
  Sender: FDA-Public Use
  Company Number: PHHY2012NL119723

PATIENT
  Sex: Male

DRUGS (9)
  1. PROPOFOL [Suspect]
     Indication: SEDATION
     Dosage: 4.7 mg/kg, per hour
  2. PROPOFOL [Suspect]
     Dosage: 5.8 mg/kg, per hour
  3. PROPOFOL [Suspect]
     Dosage: 4.7 mg/kg, per hour
  4. MORPHINE [Suspect]
     Dosage: 0.07 mg/kg, per hour
  5. MORPHINE [Suspect]
     Dosage: 0.1 mg/kg, per hour
  6. MORPHINE [Suspect]
     Dosage: 0.07 mg/kg, per hour
  7. NOREPINEPHRINE [Suspect]
     Indication: CEREBRAL HYPOPERFUSION
     Dosage: 0.3 mg/kg, UNK
  8. ROCURONIUM BROMIDE [Suspect]
     Indication: INTRACRANIAL PRESSURE INCREASED
  9. MIDAZOLAM [Suspect]
     Indication: AGITATION
     Dosage: 0.1 mg/kg, per hour

REACTIONS (15)
  - Circulatory collapse [Fatal]
  - Propofol infusion syndrome [Unknown]
  - Electrocardiogram abnormal [Unknown]
  - Acidosis hyperchloraemic [Unknown]
  - Phlebitis [Unknown]
  - Lung infiltration [Unknown]
  - Lactic acidosis [Unknown]
  - Metabolic acidosis [Unknown]
  - Hyperkalaemia [Recovered/Resolved]
  - Hypertriglyceridaemia [Unknown]
  - Cardiac failure [Unknown]
  - Renal failure [Unknown]
  - Drug resistance [Unknown]
  - Intracranial pressure increased [Unknown]
  - Brain oedema [Unknown]
